FAERS Safety Report 18851686 (Version 1)
Quarter: 2021Q1

REPORT INFORMATION
  Report Type: Spontaneous
  Country: TW (occurrence: TW)
  Receive Date: 20210205
  Receipt Date: 20210205
  Transmission Date: 20210420
  Serious: Yes (Other)
  Sender: FDA-Public Use
  Company Number: TW-AMGEN-TWNSP2018117575

PATIENT
  Age: 48 Year
  Sex: Female

DRUGS (15)
  1. PENTOSAN POLYSULFATE [Concomitant]
     Active Substance: PENTOSAN POLYSULFATE
  2. BLINCYTO [Suspect]
     Active Substance: BLINATUMOMAB
     Dosage: 28 MICROGRAM, QD
     Route: 065
     Dates: start: 201808
  3. DASATINIB. [Concomitant]
     Active Substance: DASATINIB
     Indication: B PRECURSOR TYPE ACUTE LEUKAEMIA
     Dosage: UNK
     Dates: start: 2017
  4. BLINCYTO [Suspect]
     Active Substance: BLINATUMOMAB
     Indication: B PRECURSOR TYPE ACUTE LEUKAEMIA
     Dosage: UNK
     Route: 065
     Dates: start: 20170324
  5. CEFTAZIDIME. [Concomitant]
     Active Substance: CEFTAZIDIME
  6. UNASYN [SULTAMICILLIN] [Concomitant]
     Active Substance: SULTAMICILLIN
  7. VALACICLOVIR [VALACICLOVIR HYDROCHLORIDE] [Concomitant]
  8. CEFEPIME [Concomitant]
     Active Substance: CEFEPIME HYDROCHLORIDE
     Dosage: 500 MILLIGRAM
  9. CYCLOPHOSPHAMIDE. [Concomitant]
     Active Substance: CYCLOPHOSPHAMIDE
     Dosage: UNK
  10. CEFOTAXIME [Concomitant]
     Active Substance: CEFOTAXIME SODIUM
  11. BLINCYTO [Suspect]
     Active Substance: BLINATUMOMAB
     Dosage: 9 MICROGRAM, QD
     Route: 065
     Dates: start: 2018
  12. VANCOMYCIN [Concomitant]
     Active Substance: VANCOMYCIN
     Dosage: 500 MILLIGRAM
  13. CEFIXIME. [Concomitant]
     Active Substance: CEFIXIME
     Dosage: 100 MILLIGRAM
  14. ENTECAVIR. [Concomitant]
     Active Substance: ENTECAVIR
     Dosage: 0.5 MILLIGRAM
  15. CEFAZOLINE [CEFAZOLIN] [Concomitant]
     Active Substance: CEFAZOLIN

REACTIONS (7)
  - B precursor type acute leukaemia [Unknown]
  - Delirium [Unknown]
  - Cytokine release syndrome [Unknown]
  - Hypogammaglobulinaemia [Unknown]
  - Hepatitis B reactivation [Unknown]
  - Abnormal behaviour [Unknown]
  - Disorientation [Unknown]

NARRATIVE: CASE EVENT DATE: 2018
